FAERS Safety Report 5943089-0 (Version None)
Quarter: 2008Q4

REPORT INFORMATION
  Report Type: 
  Country: None (occurrence: None)
  Receive Date: 20081106
  Receipt Date: 20081027
  Transmission Date: 20090506
  Serious: Yes (Death, Life-Threatening, Hospitalization)
  Sender: FDA-Public Use
  Company Number: BE-BAYER-200829139GPV

PATIENT
  Age: 57 Year
  Sex: Male

DRUGS (6)
  1. AVELOX [Suspect]
     Indication: CHRONIC OBSTRUCTIVE PULMONARY DISEASE
     Dosage: TOTAL DAILY DOSE: 400 MG  UNIT DOSE: 400 MG
     Route: 048
  2. ORAP [Interacting]
     Indication: SCHIZOPHRENIA
     Route: 065
  3. SIPRALEXA [Interacting]
     Indication: DEPRESSION
     Route: 065
  4. DAONIL [Concomitant]
     Indication: DRUG USE FOR UNKNOWN INDICATION
  5. TRITACE [Concomitant]
     Indication: DRUG USE FOR UNKNOWN INDICATION
  6. EMCONCOR [Concomitant]
     Indication: DRUG USE FOR UNKNOWN INDICATION

REACTIONS (5)
  - BRADYCARDIA [None]
  - CARDIAC ARREST [None]
  - ELECTROCARDIOGRAM QT PROLONGED [None]
  - LOSS OF CONSCIOUSNESS [None]
  - TORSADE DE POINTES [None]
